FAERS Safety Report 9785978 (Version 1)
Quarter: 2013Q4

REPORT INFORMATION
  Report Type: Spontaneous
  Country: IE (occurrence: IE)
  Receive Date: 20131227
  Receipt Date: 20131227
  Transmission Date: 20140711
  Serious: Yes (Death)
  Sender: FDA-Public Use
  Company Number: IE-B.I. PHARMACEUTICALS,INC./RIDGEFIELD-2013-BI-43477UK

PATIENT
  Age: 69 Year
  Sex: Female

DRUGS (21)
  1. PERSANTIN RETARD [Suspect]
     Indication: PROPHYLAXIS
     Dosage: 15 ML
     Dates: start: 20130520, end: 20131125
  2. ASPIRIN [Suspect]
     Indication: PROPHYLAXIS
     Dosage: 75 MG
     Dates: start: 201210, end: 20131125
  3. LEXAPRO [Suspect]
     Indication: DEPRESSION
     Dosage: 10 MG
     Dates: end: 20131125
  4. LANSOPRAZOLE [Concomitant]
     Dosage: 30 MG
  5. SITAGLIPTIN [Concomitant]
     Dosage: 100 MG
  6. LEVETIRACETAM [Concomitant]
     Dosage: 1500 MG
     Route: 048
  7. ALPRAZOLAM [Concomitant]
     Dosage: 1 ML
  8. ONDANSETRON [Concomitant]
     Dosage: ROUTE: PEG
  9. ZOPICLONE [Concomitant]
     Dosage: ROUTE: PEG
  10. CALOGEN [Concomitant]
     Dosage: 90 ML
  11. METOPROLOL TARTRATE [Concomitant]
     Dosage: 25 MG
  12. CYCLIZINE [Concomitant]
     Dosage: 150 MG
  13. GAVISCON LIQUID [Concomitant]
     Dosage: ROUTE: PEG, DOSE: 10-25ML
  14. LYRICA [Concomitant]
     Dosage: 25 MG
  15. PHARMATON KIDDI [Concomitant]
     Dosage: 15 ML
  16. PERINDOPRIL [Concomitant]
     Dosage: 5 MG
     Route: 048
  17. LACTULOSE [Concomitant]
     Dosage: 30 ML
  18. PARACETAMOL [Concomitant]
     Dosage: 4 G
     Route: 048
  19. RISPERIDONE [Concomitant]
     Dosage: 0.5 MG
  20. PROCAL [Concomitant]
     Dosage: 90 ML
  21. NUTRISON [Concomitant]
     Dosage: 1000 ML

REACTIONS (3)
  - Haematemesis [Fatal]
  - Haematemesis [Fatal]
  - Haemoglobin decreased [Fatal]
